FAERS Safety Report 17991853 (Version 1)
Quarter: 2020Q3

REPORT INFORMATION
  Report Type: Spontaneous
  Country: US (occurrence: US)
  Receive Date: 20200708
  Receipt Date: 20200708
  Transmission Date: 20201103
  Serious: No
  Sender: FDA-Public Use
  Company Number: US-CIPLA LTD.-2019US04817

PATIENT

DRUGS (1)
  1. WARFARIN [Suspect]
     Active Substance: WARFARIN
     Indication: PRODUCT USED FOR UNKNOWN INDICATION
     Dosage: UNK, 6 MG TABLETS 4X/WEEK, 9 MG (1.5 TABLET) 3X/WEEK
     Route: 065
     Dates: start: 2017

REACTIONS (3)
  - Arthralgia [Unknown]
  - Wrong technique in product usage process [Unknown]
  - Myalgia [Unknown]
